FAERS Safety Report 6107815-2 (Version None)
Quarter: 2009Q1

REPORT INFORMATION
  Report Type: 
  Country: None (occurrence: None)
  Receive Date: 20090309
  Receipt Date: 20090303
  Transmission Date: 20090719
  Serious: Yes (Hospitalization)
  Sender: FDA-Public Use
  Company Number: B0563680A

PATIENT
  Age: 56 Year
  Sex: Male

DRUGS (13)
  1. CARVEDILOL [Suspect]
     Indication: PAIN
     Dosage: 12.5MG TWICE PER DAY
     Route: 065
  2. SIMVASTATIN [Suspect]
     Route: 065
  3. DILTIAZEM [Suspect]
     Dosage: 60MG TWICE PER DAY
     Route: 065
  4. RANOLAZINE [Suspect]
     Route: 065
  5. CYCLOSPORINE [Suspect]
     Dosage: 75MG TWICE PER DAY
     Route: 065
  6. METOPROLOL [Suspect]
     Route: 065
  7. TAMSULOSIN HCL [Suspect]
     Route: 065
  8. SERTRALINE [Suspect]
     Route: 065
  9. FLUDROCORTISONE [Suspect]
     Route: 065
  10. CLONIDINE [Suspect]
     Route: 065
  11. ESOMEPRAZOLE [Suspect]
     Route: 065
  12. CLOPIDOGREL [Suspect]
     Route: 065
  13. INSULIN GLARGINE [Suspect]
     Route: 065

REACTIONS (8)
  - ASPARTATE AMINOTRANSFERASE INCREASED [None]
  - ASTHENIA [None]
  - BLOOD CREATINE PHOSPHOKINASE INCREASED [None]
  - BLOOD CREATININE INCREASED [None]
  - DRUG INTERACTION [None]
  - MYALGIA [None]
  - MYOGLOBIN BLOOD INCREASED [None]
  - RHABDOMYOLYSIS [None]
